FAERS Safety Report 8990926 (Version 1)
Quarter: 2012Q4

REPORT INFORMATION
  Report Type: 
  Country: FR (occurrence: FR)
  Receive Date: 20121231
  Receipt Date: 20121231
  Transmission Date: 20130627
  Serious: Yes (Hospitalization)
  Sender: FDA-Public Use
  Company Number: FR-BAYER-2012-135423

PATIENT
  Age: 60 Year
  Sex: Female

DRUGS (3)
  1. CIFLOX [Suspect]
     Indication: URINARY TRACT INFECTION
     Dosage: UNK
     Route: 048
     Dates: start: 20121027, end: 20121031
  2. PARACETAMOL [Suspect]
     Dosage: UNK
     Route: 048
     Dates: start: 20121027, end: 20121030
  3. RED YEAST RICE EXTRACT [Concomitant]

REACTIONS (2)
  - Idiopathic thrombocytopenic purpura [Recovered/Resolved]
  - Haematoma [Recovered/Resolved]
